FAERS Safety Report 8342052-2 (Version None)
Quarter: 2012Q2

REPORT INFORMATION
  Report Type: 
  Country: None (occurrence: None)
  Receive Date: 20120507
  Receipt Date: 20120320
  Transmission Date: 20120825
  Serious: Yes (Other)
  Sender: FDA-Public Use
  Company Number: US-ROCHE-1051079

PATIENT
  Sex: Female
  Weight: 72.64 kg

DRUGS (9)
  1. OMALIZUMAB [Suspect]
     Route: 058
  2. THEOPHYLLINE [Concomitant]
     Indication: ASTHMA
     Dates: start: 20120127
  3. OMALIZUMAB [Suspect]
     Indication: ASTHMA
     Route: 058
     Dates: start: 20120308
  4. ALBUTEROL [Concomitant]
     Indication: ASTHMA
     Dosage: INHALED Q6HPRN
  5. ALBUTEROL [Concomitant]
     Indication: ASTHMA
  6. ZIAC [Concomitant]
     Indication: HYPERTENSION
     Route: 048
     Dates: start: 20100101
  7. SINGULAIR [Concomitant]
     Indication: ASTHMA
     Route: 048
  8. PREDNISONE [Concomitant]
     Indication: ASTHMA
     Route: 048
  9. QVAR 40 [Concomitant]
     Indication: ASTHMA
     Dosage: INHALER

REACTIONS (3)
  - HYPOTENSION [None]
  - FLUSHING [None]
  - ANAPHYLACTIC REACTION [None]
